FAERS Safety Report 11865232 (Version 2)
Quarter: 2015Q4

REPORT INFORMATION
  Report Type: Other
  Country: US (occurrence: US)
  Receive Date: 20151223
  Receipt Date: 20151231
  Transmission Date: 20160305
  Serious: Yes (Death, Other)
  Sender: FDA-Public Use
  Company Number: US-SHIRE-US201516761

PATIENT
  Age: 69 Year
  Sex: Male
  Weight: 113.38 kg

DRUGS (1)
  1. LIALDA [Suspect]
     Active Substance: MESALAMINE
     Indication: COLITIS
     Dosage: UNK, UNKNOWN
     Route: 048
     Dates: start: 2012

REACTIONS (3)
  - Pleural effusion [Unknown]
  - Mesothelioma [Unknown]
  - Death [Fatal]

NARRATIVE: CASE EVENT DATE: 2013
